FAERS Safety Report 22173441 (Version 1)
Quarter: 2023Q2

REPORT INFORMATION
  Report Type: Report from Study
  Country: US (occurrence: US)
  Receive Date: 20230404
  Receipt Date: 20230404
  Transmission Date: 20230721
  Serious: Yes (Hospitalization, Other)
  Sender: FDA-Public Use
  Company Number: US-GILEAD-2023-0622660

PATIENT
  Sex: Female

DRUGS (40)
  1. AZTREONAM LYSINE [Suspect]
     Active Substance: AZTREONAM LYSINE
     Indication: Cystic fibrosis
     Dosage: 75 MG, TID (INHALE 1 VIAL 3 TIMES A DAY, ALTERNATING EVERY OTHER MONTH)
     Route: 055
     Dates: start: 202208
  2. AZTREONAM LYSINE [Suspect]
     Active Substance: AZTREONAM LYSINE
     Indication: Pseudomonas infection
  3. HUMALOG [Concomitant]
     Active Substance: INSULIN LISPRO
  4. CREON [Concomitant]
     Active Substance: PANCRELIPASE AMYLASE\PANCRELIPASE LIPASE\PANCRELIPASE PROTEASE
  5. ZYRTEC [Concomitant]
     Active Substance: CETIRIZINE HYDROCHLORIDE
  6. PREMARIN [Concomitant]
     Active Substance: ESTROGENS, CONJUGATED
  7. AZITHROMYCIN [Concomitant]
     Active Substance: AZITHROMYCIN
  8. LEVALBUTEROL HYDROCHLORIDE [Concomitant]
     Active Substance: LEVALBUTEROL HYDROCHLORIDE
  9. CYANOCOBALAMIN [Concomitant]
     Active Substance: CYANOCOBALAMIN
  10. LEVEMIR [Concomitant]
     Active Substance: INSULIN DETEMIR
  11. LAMICTAL [Concomitant]
     Active Substance: LAMOTRIGINE
  12. SYMBICORT [Concomitant]
     Active Substance: BUDESONIDE\FORMOTEROL FUMARATE DIHYDRATE
  13. ALBUTEROL SULFATE [Concomitant]
     Active Substance: ALBUTEROL SULFATE
  14. DIAZEPAM [Concomitant]
     Active Substance: DIAZEPAM
  15. CARVEDILOL [Concomitant]
     Active Substance: CARVEDILOL
  16. SCOPOLAMINE [Concomitant]
     Active Substance: SCOPOLAMINE
  17. PANTOPRAZOLE SODIUM [Concomitant]
     Active Substance: PANTOPRAZOLE SODIUM
  18. DICYCLOMINE HYDROCHLORIDE [Concomitant]
     Active Substance: DICYCLOMINE HYDROCHLORIDE
  19. SPIRIVA [Concomitant]
     Active Substance: TIOTROPIUM BROMIDE MONOHYDRATE
  20. MONTELUKAST SODIUM [Concomitant]
     Active Substance: MONTELUKAST SODIUM
  21. LEVETIRACETAM [Concomitant]
     Active Substance: LEVETIRACETAM
  22. FENOFIBRATE [Concomitant]
     Active Substance: FENOFIBRATE
  23. DEXCON [Concomitant]
  24. AMLODIPINE BESYLATE [Concomitant]
     Active Substance: AMLODIPINE BESYLATE
  25. LEVOCETIRIZINE DIHYDROCHLORIDE [Concomitant]
     Active Substance: LEVOCETIRIZINE DIHYDROCHLORIDE
  26. RIBOFLAVIN [Concomitant]
     Active Substance: RIBOFLAVIN
  27. LOSARTAN POTASSIUM [Concomitant]
     Active Substance: LOSARTAN POTASSIUM
  28. MECLIZINE HYDROCHLORIDE [Concomitant]
     Active Substance: MECLIZINE HYDROCHLORIDE
  29. CHOLINE [Concomitant]
     Active Substance: CHOLINE
  30. LASIX [Concomitant]
     Active Substance: FUROSEMIDE
  31. SANCUSO [Concomitant]
     Active Substance: GRANISETRON
  32. EPIPEN [Concomitant]
     Active Substance: EPINEPHRINE
  33. GABAPENTIN [Concomitant]
     Active Substance: GABAPENTIN
  34. VITAMIN D2 [Concomitant]
     Active Substance: ERGOCALCIFEROL
  35. ADDERALL [Concomitant]
     Active Substance: AMPHETAMINE ASPARTATE\AMPHETAMINE SULFATE\DEXTROAMPHETAMINE SACCHARATE\DEXTROAMPHETAMINE SULFATE
  36. PLAQUENIL [Concomitant]
     Active Substance: HYDROXYCHLOROQUINE SULFATE
  37. NUVIGIL [Concomitant]
     Active Substance: ARMODAFINIL
  38. XIFAXAN [Concomitant]
     Active Substance: RIFAXIMIN
  39. NURTEC ODT [Concomitant]
     Active Substance: RIMEGEPANT SULFATE
  40. IRON [Concomitant]
     Active Substance: IRON

REACTIONS (3)
  - Bacterial infection [Unknown]
  - Urinary tract infection [Unknown]
  - Kidney infection [Unknown]
